FAERS Safety Report 7274371-5 (Version None)
Quarter: 2011Q1

REPORT INFORMATION
  Report Type: 
  Country: None (occurrence: None)
  Receive Date: 20110201
  Receipt Date: 20110201
  Transmission Date: 20110831
  Serious: Yes (Hospitalization)
  Sender: FDA-Public Use
  Company Number: None

PATIENT
  Age: 34 Year
  Sex: Female
  Weight: 71.4 kg

DRUGS (1)
  1. GADOLINIUM [Suspect]
     Indication: NUCLEAR MAGNETIC RESONANCE IMAGING
     Dosage: GADOLINIUM ONCE IV BOLUS
     Route: 040
     Dates: start: 20110116, end: 20110116

REACTIONS (2)
  - DIALYSIS [None]
  - CONTRAINDICATION TO MEDICAL TREATMENT [None]
